FAERS Safety Report 24283978 (Version 2)
Quarter: 2024Q3

REPORT INFORMATION
  Report Type: Spontaneous
  Country: BG (occurrence: BG)
  Receive Date: 20240905
  Receipt Date: 20240920
  Transmission Date: 20241016
  Serious: Yes (Hospitalization)
  Sender: TEVA
  Company Number: BG-TEVA-VS-3238255

PATIENT
  Age: 48 Year
  Sex: Male

DRUGS (1)
  1. NEBIVOLOL [Suspect]
     Active Substance: NEBIVOLOL
     Indication: Hypertension
     Dosage: 1/4 OF 5MG IN THE MORNING ONCE DAILY.
     Route: 048

REACTIONS (2)
  - Lichen planus [Recovering/Resolving]
  - Penis disorder [Recovering/Resolving]
